FAERS Safety Report 4551078-6 (Version None)
Quarter: 2005Q1

REPORT INFORMATION
  Report Type: 
  Country: None (occurrence: None)
  Receive Date: 20050113
  Receipt Date: 20040408
  Transmission Date: 20050727
  Serious: Yes (Hospitalization)
  Sender: FDA-Public Use
  Company Number: US-BRISTOL-MYERS SQUIBB COMPANY-12555975

PATIENT
  Sex: Female

DRUGS (4)
  1. IFEX [Suspect]
     Indication: SARCOMA
     Route: 042
     Dates: start: 20040406, end: 20040408
  2. ADRIAMYCIN PFS [Concomitant]
     Dates: start: 20040406, end: 20040408
  3. MESNA [Concomitant]
     Dates: start: 20040406, end: 20040408
  4. DACTINOMYCIN [Concomitant]
     Dates: start: 20040406, end: 20040408

REACTIONS (4)
  - ASTHENIA [None]
  - CONFUSIONAL STATE [None]
  - DISORIENTATION [None]
  - SOMNOLENCE [None]
